FAERS Safety Report 5702547-4 (Version None)
Quarter: 2008Q2

REPORT INFORMATION
  Report Type: 
  Country: None (occurrence: None)
  Receive Date: 20080411
  Receipt Date: 20070418
  Transmission Date: 20081010
  Serious: No
  Sender: FDA-Public Use
  Company Number: US-ASTRAZENECA-2007UW07741

PATIENT
  Age: 36 Year
  Sex: Female

DRUGS (2)
  1. ATENOLOL [Suspect]
     Route: 048
     Dates: start: 20030101, end: 20060101
  2. TOPROL-XL [Suspect]
     Route: 048
     Dates: start: 20060101

REACTIONS (1)
  - WEIGHT INCREASED [None]
